FAERS Safety Report 18057168 (Version 2)
Quarter: 2020Q3

REPORT INFORMATION
  Report Type: Spontaneous
  Country: IL (occurrence: IL)
  Receive Date: 20200723
  Receipt Date: 20200803
  Transmission Date: 20201103
  Serious: Yes (Hospitalization)
  Sender: FDA-Public Use
  Company Number: IL-TEVA-2020-IL-1797735

PATIENT
  Age: 2 Year
  Sex: Female
  Weight: 11.3 kg

DRUGS (1)
  1. DEXTROAMPHET SACCHARAT, AMPHET ASPARTATE, DEXTROAMPHET SULFATE AND AMPHET SULFAT [Suspect]
     Active Substance: AMPHETAMINE ASPARTATE\AMPHETAMINE SULFATE\DEXTROAMPHETAMINE SACCHARATE\DEXTROAMPHETAMINE SULFATE
     Dosage: MAXIMAL AMOUNT OF PILLS THAT SHE COULD HAVE SWALLOWED WERE 2?4
     Route: 048

REACTIONS (21)
  - Psychomotor hyperactivity [Recovered/Resolved]
  - Restlessness [Recovered/Resolved]
  - Hyperhidrosis [Recovered/Resolved]
  - Abnormal behaviour [Recovered/Resolved]
  - Erythema [Recovered/Resolved]
  - Accidental exposure to product by child [Recovered/Resolved]
  - Pruritus [Recovered/Resolved]
  - Cough [Recovered/Resolved]
  - Packaging design issue [Recovered/Resolved]
  - Affect lability [Recovered/Resolved]
  - Decreased appetite [Recovered/Resolved]
  - Screaming [Recovered/Resolved]
  - Heart rate increased [Recovered/Resolved]
  - Mydriasis [Recovered/Resolved]
  - Vomiting [Recovered/Resolved]
  - Thirst [Recovered/Resolved]
  - Pyrexia [Recovered/Resolved]
  - Nervousness [Recovered/Resolved]
  - Hypersomnia [Recovered/Resolved]
  - Crying [Recovered/Resolved]
  - Agitation [Recovered/Resolved]

NARRATIVE: CASE EVENT DATE: 202006
